FAERS Safety Report 9888115 (Version 1)
Quarter: 2014Q1

REPORT INFORMATION
  Report Type: Spontaneous
  Country: US (occurrence: None)
  Receive Date: 20140210
  Receipt Date: 20140210
  Transmission Date: 20141002
  Serious: Yes (Life-Threatening, Other)
  Sender: FDA-Public Use
  Company Number: None

PATIENT
  Age: 59 Year
  Sex: Female
  Weight: 52.62 kg

DRUGS (1)
  1. HYDROCODONE [Suspect]
     Indication: BACK INJURY
     Dosage: 2 X 3 TIMES PER DAY, THREE TIMES DAILY TAKEN BY MOUTH
     Route: 048
     Dates: start: 20131030, end: 20140123

REACTIONS (4)
  - Depression [None]
  - Anxiety [None]
  - Agitation [None]
  - Nervous system disorder [None]
